FAERS Safety Report 5931543-7 (Version None)
Quarter: 2008Q4

REPORT INFORMATION
  Report Type: 
  Country: None (occurrence: None)
  Receive Date: 20081027
  Receipt Date: 20081020
  Transmission Date: 20090506
  Serious: Yes (Death)
  Sender: FDA-Public Use
  Company Number: B0540964A

PATIENT
  Age: 11 Year
  Sex: Female
  Weight: 40 kg

DRUGS (1)
  1. WELLBUTRIN [Suspect]
     Indication: DEPRESSION
     Route: 048
     Dates: start: 20080613, end: 20080705

REACTIONS (5)
  - ANOXIC ENCEPHALOPATHY [None]
  - COMA [None]
  - COMPLETED SUICIDE [None]
  - INTENTIONAL OVERDOSE [None]
  - STATUS EPILEPTICUS [None]
